FAERS Safety Report 9672452 (Version 1)
Quarter: 2013Q4

REPORT INFORMATION
  Report Type: Spontaneous
  Country: GB (occurrence: GB)
  Receive Date: 20131106
  Receipt Date: 20131106
  Transmission Date: 20140711
  Serious: Yes (Other)
  Sender: FDA-Public Use
  Company Number: GB-TAKEDA-2013TJP002446

PATIENT
  Sex: 0

DRUGS (1)
  1. ZOTON FASTAB [Suspect]
     Dosage: 30 MG, QD
     Route: 048

REACTIONS (2)
  - Urinary retention [Unknown]
  - Off label use [Unknown]
